FAERS Safety Report 4752483-5 (Version None)
Quarter: 2005Q3

REPORT INFORMATION
  Report Type: 
  Country: None (occurrence: None)
  Receive Date: 20050825
  Receipt Date: 20050822
  Transmission Date: 20060218
  Serious: Yes (Other)
  Sender: FDA-Public Use
  Company Number: GB-ROCHE-415142

PATIENT
  Age: 73 Year
  Sex: Female
  Weight: 151.5 kg

DRUGS (1)
  1. XENICAL [Suspect]
     Indication: OBESITY
     Route: 048
     Dates: start: 20050804, end: 20050805

REACTIONS (1)
  - DYSPNOEA [None]
